FAERS Safety Report 4308946-X (Version None)
Quarter: 2004Q1

REPORT INFORMATION
  Report Type: 
  Country: None (occurrence: None)
  Receive Date: 20040227
  Receipt Date: 20040217
  Transmission Date: 20041129
  Serious: Yes (Hospitalization)
  Sender: FDA-Public Use
  Company Number: US-JNJFOC-20040103843

PATIENT
  Sex: Female
  Weight: 53.0709 kg

DRUGS (1)
  1. REMICADE [Suspect]
     Indication: CROHN'S DISEASE
     Dosage: INTRAVENOUS
     Route: 030

REACTIONS (2)
  - ADHESION [None]
  - SMALL INTESTINAL OBSTRUCTION [None]
